FAERS Safety Report 22174315 (Version 3)
Quarter: 2023Q2

REPORT INFORMATION
  Report Type: Spontaneous
  Country: US (occurrence: US)
  Receive Date: 20230405
  Receipt Date: 20230601
  Transmission Date: 20230722
  Serious: Yes (Death)
  Sender: FDA-Public Use
  Company Number: US-002147023-NVSC2023US078017

PATIENT
  Sex: Male

DRUGS (1)
  1. COSENTYX [Suspect]
     Active Substance: SECUKINUMAB
     Indication: Ankylosing spondylitis
     Dosage: 300 MILLIGRAM PER MILLILITRE, QMO (ONCE EVERY 4WEEKS) (APPROXIMATELY 4 YEARS)
     Route: 058
     Dates: start: 2017

REACTIONS (1)
  - Colon cancer metastatic [Fatal]
